FAERS Safety Report 6837963-0 (Version None)
Quarter: 2010Q3

REPORT INFORMATION
  Report Type: 
  Country: None (occurrence: None)
  Receive Date: 20100713
  Receipt Date: 20070529
  Transmission Date: 20110219
  Serious: No
  Sender: FDA-Public Use
  Company Number: US-PFIZER INC-2007041235

PATIENT
  Sex: Female
  Weight: 56.7 kg

DRUGS (10)
  1. CHANTIX [Suspect]
     Indication: SMOKING CESSATION THERAPY
     Dates: start: 20070501
  2. PREMARIN [Concomitant]
  3. PLAVIX [Concomitant]
  4. TRICOR [Concomitant]
  5. PROTONIX [Concomitant]
  6. PRIMIDONE [Concomitant]
  7. EFFEXOR [Concomitant]
  8. LOMOTIL [Concomitant]
  9. CLONIDINE [Concomitant]
     Indication: BLOOD PRESSURE ABNORMAL
  10. MIDODRINE HYDROCHLORIDE [Concomitant]
     Indication: BLOOD PRESSURE ABNORMAL

REACTIONS (4)
  - CHILLS [None]
  - FEELING HOT [None]
  - FLATULENCE [None]
  - PERIPHERAL COLDNESS [None]
